FAERS Safety Report 6882864-5 (Version None)
Quarter: 2010Q3

REPORT INFORMATION
  Report Type: 
  Country: None (occurrence: None)
  Receive Date: 20100729
  Receipt Date: 20100715
  Transmission Date: 20110219
  Serious: Yes (Death, Hospitalization)
  Sender: FDA-Public Use
  Company Number: BR-ELI_LILLY_AND_COMPANY-BR201007001765

PATIENT
  Sex: Female

DRUGS (2)
  1. FORTEO [Suspect]
     Dosage: UNK, UNKNOWN
     Route: 065
  2. OXYGEN [Concomitant]
     Indication: ASTHMA
     Dosage: UNK, UNKNOWN
     Route: 065

REACTIONS (2)
  - DYSPNOEA [None]
  - INFARCTION [None]
